FAERS Safety Report 5785340-6 (Version None)
Quarter: 2008Q2

REPORT INFORMATION
  Report Type: 
  Country: None (occurrence: None)
  Receive Date: 20080624
  Receipt Date: 20080617
  Transmission Date: 20081010
  Serious: Yes (Other)
  Sender: FDA-Public Use
  Company Number: US-MERCK-0806USA07805

PATIENT
  Sex: Male

DRUGS (1)
  1. FOSAMAX [Suspect]
     Route: 048
     Dates: start: 19970401, end: 20070830

REACTIONS (5)
  - DYSPHONIA [None]
  - DYSPNOEA [None]
  - ORAL TORUS [None]
  - OSTEONECROSIS [None]
  - SPINAL DISORDER [None]
